FAERS Safety Report 9630693 (Version 2)
Quarter: 2013Q4

REPORT INFORMATION
  Report Type: Spontaneous
  Country: US (occurrence: None)
  Receive Date: 20131015
  Receipt Date: 20131227
  Transmission Date: 20140711
  Serious: Yes (Death, Other)
  Sender: FDA-Public Use
  Company Number: ADR-2013-01828

PATIENT
  Age: 63 Year
  Sex: Female

DRUGS (2)
  1. BACLOFEN [Suspect]
     Indication: MUSCLE SPASTICITY
  2. SPINAL INJECTIONS [Suspect]

REACTIONS (3)
  - Death [None]
  - Lung neoplasm malignant [None]
  - Pain [None]
